FAERS Safety Report 8993066 (Version 3)
Quarter: 2013Q1

REPORT INFORMATION
  Report Type: Report from Study
  Country: CO (occurrence: CO)
  Receive Date: 20130102
  Receipt Date: 20130131
  Transmission Date: 20140127
  Serious: Yes (Death, Hospitalization)
  Sender: FDA-Public Use
  Company Number: CO-ROCHE-1173447

PATIENT
  Age: 64 Year
  Sex: Male

DRUGS (1)
  1. MIRCERA [Suspect]
     Indication: NEPHROGENIC ANAEMIA
     Route: 058
     Dates: start: 20110214

REACTIONS (3)
  - Death [Fatal]
  - Acute myocardial infarction [Not Recovered/Not Resolved]
  - Nervous system disorder [Not Recovered/Not Resolved]
